FAERS Safety Report 23545613 (Version 1)
Quarter: 2024Q1

REPORT INFORMATION
  Report Type: Spontaneous
  Country: US (occurrence: None)
  Receive Date: 20240218
  Receipt Date: 20240218
  Transmission Date: 20240409
  Serious: Yes (Disabling)
  Sender: FDA-Public Use
  Company Number: None

PATIENT
  Age: 60 Year
  Sex: Female
  Weight: 72 kg

DRUGS (7)
  1. PROLIA [Suspect]
     Active Substance: DENOSUMAB
     Indication: Osteoporosis
     Dosage: OTHER FREQUENCY : ONCE EVERY 6 MOS.;?
     Route: 058
     Dates: start: 20211122, end: 20231201
  2. ALENDRONATE [Concomitant]
     Active Substance: ALENDRONATE SODIUM
  3. FAMOTIDINE [Concomitant]
     Active Substance: FAMOTIDINE
  4. Calcium + K2/D3 [Concomitant]
  5. BORON [Concomitant]
     Active Substance: BORON
  6. Glycinate [Concomitant]
  7. Garden of Life Multivitamin [Concomitant]

REACTIONS (3)
  - Vertigo [None]
  - Myalgia [None]
  - Blood cholesterol increased [None]

NARRATIVE: CASE EVENT DATE: 20221201
